FAERS Safety Report 10183059 (Version 1)
Quarter: 2014Q2

REPORT INFORMATION
  Report Type: Spontaneous
  Country: US (occurrence: US)
  Receive Date: 20140520
  Receipt Date: 20140520
  Transmission Date: 20141212
  Serious: No
  Sender: FDA-Public Use
  Company Number: US-PFIZER INC-2014135176

PATIENT
  Age: 9 Year
  Sex: Female

DRUGS (1)
  1. CHILDRENS ADVIL [Suspect]
     Indication: PYREXIA
     Dosage: UNK
     Dates: start: 20140513

REACTIONS (1)
  - Glossodynia [Unknown]
